FAERS Safety Report 19649163 (Version 3)
Quarter: 2021Q3

REPORT INFORMATION
  Report Type: Spontaneous
  Country: US (occurrence: US)
  Receive Date: 20210803
  Receipt Date: 20210823
  Transmission Date: 20211014
  Serious: Yes (Other)
  Sender: FDA-Public Use
  Company Number: US-TAKEDA-2021TUS045914

PATIENT
  Sex: Female
  Weight: 68 kg

DRUGS (3)
  1. NINLARO [Suspect]
     Active Substance: IXAZOMIB CITRATE
     Indication: NEOPLASM MALIGNANT
     Dosage: 4 MILLIGRAM
     Route: 065
  2. DEXAMETHASONE. [Suspect]
     Active Substance: DEXAMETHASONE
     Indication: PRODUCT USED FOR UNKNOWN INDICATION
     Dosage: UNK
     Route: 065
  3. NINLARO [Suspect]
     Active Substance: IXAZOMIB CITRATE
     Indication: PLASMA CELL MYELOMA REFRACTORY
     Dosage: 4 MILLIGRAM, 1/WEEK
     Route: 065

REACTIONS (8)
  - Pain [Unknown]
  - Muscle twitching [Unknown]
  - Gastric disorder [Unknown]
  - Rash pruritic [Unknown]
  - Gastrointestinal motility disorder [Recovered/Resolved]
  - Illness [Unknown]
  - Near death experience [Unknown]
  - Eye disorder [Unknown]
